FAERS Safety Report 13970455 (Version 1)
Quarter: 2017Q3

REPORT INFORMATION
  Report Type: Spontaneous
  Country: FR (occurrence: FR)
  Receive Date: 20170914
  Receipt Date: 20170914
  Transmission Date: 20171128
  Serious: Yes (Other)
  Sender: FDA-Public Use
  Company Number: FR-PFIZER INC-2017397535

PATIENT
  Age: 70 Year
  Sex: Male

DRUGS (1)
  1. CORDARONE [Suspect]
     Active Substance: AMIODARONE HYDROCHLORIDE
     Indication: VENTRICULAR EXTRASYSTOLES
     Dosage: 200 MG, 1X/DAY
     Route: 048
     Dates: start: 20170615, end: 20170623

REACTIONS (5)
  - Transaminases increased [Recovered/Resolved]
  - Coagulation factor V level decreased [Recovered/Resolved]
  - Rash [Recovered/Resolved]
  - Cholestasis [Recovered/Resolved]
  - Pruritus [Recovered/Resolved]

NARRATIVE: CASE EVENT DATE: 20170622
